FAERS Safety Report 21551176 (Version 1)
Quarter: 2022Q4

REPORT INFORMATION
  Report Type: Spontaneous
  Country: US (occurrence: None)
  Receive Date: 20221103
  Receipt Date: 20221103
  Transmission Date: 20230112
  Serious: No
  Sender: FDA-Public Use
  Company Number: None

PATIENT
  Age: 75 Year
  Sex: Female
  Weight: 55.34 kg

DRUGS (1)
  1. ACTEMRA ACTPEN [Suspect]
     Active Substance: TOCILIZUMAB
     Indication: Microscopic polyangiitis
     Dosage: OTHER STRENGTH : 162MG/0.9ML;?FREQUENCY : EVERY OTHER WEEK;?
     Route: 058
     Dates: start: 202205

REACTIONS (3)
  - Therapy interrupted [None]
  - Drug hypersensitivity [None]
  - Pyrexia [None]
